FAERS Safety Report 11223270 (Version 1)
Quarter: 2015Q2

REPORT INFORMATION
  Report Type: Spontaneous
  Country: US (occurrence: US)
  Receive Date: 20150626
  Receipt Date: 20150626
  Transmission Date: 20150821
  Serious: No
  Sender: FDA-Public Use
  Company Number: US-BIOMARINAP-US-2015-106716

PATIENT
  Sex: Female
  Weight: 10 kg

DRUGS (1)
  1. KUVAN [Suspect]
     Active Substance: SAPROPTERIN DIHYDROCHLORIDE
     Indication: PHENYLKETONURIA
     Dosage: 100 MG, QD
     Route: 048
     Dates: start: 20150612

REACTIONS (2)
  - Pyrexia [Unknown]
  - Nasal congestion [Unknown]
